FAERS Safety Report 9106083 (Version 1)
Quarter: 2013Q1

REPORT INFORMATION
  Report Type: Spontaneous
  Country: JP (occurrence: JP)
  Receive Date: 20130221
  Receipt Date: 20130221
  Transmission Date: 20140127
  Serious: Yes (Other)
  Sender: FDA-Public Use
  Company Number: JP-PFIZER INC-2013020562

PATIENT
  Sex: 0

DRUGS (1)
  1. SOMAVERT [Suspect]

REACTIONS (1)
  - Pituitary tumour recurrent [Unknown]
